FAERS Safety Report 23965373 (Version 1)
Quarter: 2024Q2

REPORT INFORMATION
  Report Type: Report from Study
  Country: DE (occurrence: DE)
  Receive Date: 20240612
  Receipt Date: 20240612
  Transmission Date: 20240716
  Serious: Yes (Other)
  Sender: FDA-Public Use
  Company Number: DE-JNJFOC-20230568682

PATIENT
  Sex: Male

DRUGS (3)
  1. SIMPONI [Suspect]
     Active Substance: GOLIMUMAB
     Indication: Axial spondyloarthritis
     Route: 058
     Dates: start: 20190116
  2. ETORICOXIB [Concomitant]
     Active Substance: ETORICOXIB
     Dates: start: 20181213, end: 20190115
  3. ETORICOXIB [Concomitant]
     Active Substance: ETORICOXIB
     Dates: start: 20200824

REACTIONS (3)
  - Pregnancy of partner [Recovered/Resolved]
  - Headache [Unknown]
  - Periodontitis [Unknown]

NARRATIVE: CASE EVENT DATE: 20211024
